FAERS Safety Report 5058976-8 (Version None)
Quarter: 2006Q2

REPORT INFORMATION
  Report Type: 
  Country: None (occurrence: None)
  Receive Date: 20060629
  Receipt Date: 20060410
  Transmission Date: 20061013
  Serious: No
  Sender: FDA-Public Use
  Company Number: PHEH2006US04763

PATIENT
  Age: 61 Year
  Sex: Male

DRUGS (6)
  1. ENABLEX [Suspect]
     Indication: HYPERTONIC BLADDER
     Dosage: 7.5 MG, QD;  15 MG, QD
     Dates: start: 20060322
  2. NEURONTIN [Concomitant]
  3. LIPITOR [Concomitant]
  4. CLORAZEPATE (CLORAZEPATE DIPOTASSIUM) [Concomitant]
  5. LORAZEPAM [Concomitant]
  6. AMBIEN [Concomitant]

REACTIONS (1)
  - DRUG INEFFECTIVE [None]
